FAERS Safety Report 6474718-3 (Version None)
Quarter: 2009Q4

REPORT INFORMATION
  Report Type: 
  Country: None (occurrence: None)
  Receive Date: 20091204
  Receipt Date: 20091126
  Transmission Date: 20100525
  Serious: Yes (Other)
  Sender: FDA-Public Use
  Company Number: B0558667A

PATIENT
  Age: 10 Year
  Sex: Female

DRUGS (1)
  1. CLENIL MODULITE [Suspect]
     Indication: ASTHMA
     Route: 055
     Dates: start: 20081107, end: 20081127

REACTIONS (2)
  - BRONCHOSPASM [None]
  - COUGH [None]
